FAERS Safety Report 9570346 (Version 1)
Quarter: 2013Q3

REPORT INFORMATION
  Report Type: Spontaneous
  Country: US (occurrence: US)
  Receive Date: 20130930
  Receipt Date: 20130930
  Transmission Date: 20140515
  Serious: No
  Sender: FDA-Public Use
  Company Number: US-AMGEN-USASP2013063860

PATIENT
  Age: 59 Year
  Sex: Male
  Weight: 131.52 kg

DRUGS (6)
  1. ENBREL [Suspect]
     Indication: PRODUCT USED FOR UNKNOWN INDICATION
     Dosage: 50 MG, 2 TIMES/WK
     Route: 058
  2. PRAVASTATIN [Concomitant]
     Dosage: 10 MG, UNK
  3. METOPROLOL [Concomitant]
     Dosage: 25 MG, UNK
  4. CHLORTHALIDONE [Concomitant]
     Dosage: 25 MG, UNK
  5. ASPIRINA ADULTOS [Concomitant]
     Dosage: 81 MG, UNK
  6. MULTIVITAMINS, PLAIN [Concomitant]
     Dosage: UNK

REACTIONS (1)
  - Drug ineffective [Unknown]
